FAERS Safety Report 4900659-6 (Version None)
Quarter: 2006Q1

REPORT INFORMATION
  Report Type: 
  Country: None (occurrence: None)
  Receive Date: 20060201
  Receipt Date: 20060109
  Transmission Date: 20060701
  Serious: Yes (Hospitalization)
  Sender: FDA-Public Use
  Company Number: US200601001319

PATIENT
  Age: 92 Year
  Sex: Female

DRUGS (3)
  1. ZYPREXA [Suspect]
     Indication: DEMENTIA
     Dosage: 7.5 MG, DAILY (1/D), ORAL
     Route: 048
     Dates: start: 20030201, end: 20041101
  2. NEURONTIN [Concomitant]
  3. ATIVAN [Concomitant]

REACTIONS (8)
  - ABNORMAL BEHAVIOUR [None]
  - AGGRESSION [None]
  - DISORIENTATION [None]
  - FALL [None]
  - FRACTURE [None]
  - HALLUCINATION, VISUAL [None]
  - PARANOIA [None]
  - REPETITIVE SPEECH [None]
